FAERS Safety Report 25984124 (Version 1)
Quarter: 2025Q4

REPORT INFORMATION
  Report Type: Spontaneous
  Country: US (occurrence: US)
  Receive Date: 20251031
  Receipt Date: 20251031
  Transmission Date: 20260117
  Serious: Yes (Life-Threatening, Hospitalization)
  Sender: AMGEN
  Company Number: US-AMGEN-USASP2025214986

PATIENT
  Age: 63 Year
  Sex: Male
  Weight: 107 kg

DRUGS (51)
  1. PREDNISONE [Suspect]
     Active Substance: PREDNISONE
     Indication: Product used for unknown indication
     Dosage: UNK
     Route: 065
  2. ALBUTEROL [Concomitant]
     Active Substance: ALBUTEROL
  3. ALTEPLASE [Concomitant]
     Active Substance: ALTEPLASE
  4. ATORVASTATIN [Concomitant]
     Active Substance: ATORVASTATIN
  5. AZITHROMYCIN [Concomitant]
     Active Substance: AZITHROMYCIN
  6. CALCIUM GLUCONATE [Concomitant]
     Active Substance: CALCIUM GLUCONATE
  7. CEFEPIME [Concomitant]
     Active Substance: CEFEPIME HYDROCHLORIDE
  8. DEXMEDETOMIDINE [Concomitant]
     Active Substance: DEXMEDETOMIDINE
  9. DEXTROSE [Concomitant]
     Active Substance: DEXTROSE MONOHYDRATE
  10. DULOXETINE [Concomitant]
     Active Substance: DULOXETINE
  11. EMPAGLIFLOZIN [Concomitant]
     Active Substance: EMPAGLIFLOZIN
  12. FENTANYL [Concomitant]
     Active Substance: FENTANYL
  13. FLUDROCORTISONE [Concomitant]
     Active Substance: FLUDROCORTISONE
  14. FLUTICASONE PROPIONATE\SALMETEROL XINAFOATE [Concomitant]
     Active Substance: FLUTICASONE PROPIONATE\SALMETEROL XINAFOATE
  15. FLUTICASONE [Concomitant]
     Active Substance: FLUTICASONE
  16. FUROSEMIDE [Concomitant]
     Active Substance: FUROSEMIDE
  17. GABAPENTIN [Concomitant]
     Active Substance: GABAPENTIN
  18. HEPARIN [Concomitant]
     Active Substance: HEPARIN SODIUM
  19. HYDROXYZINE [Concomitant]
     Active Substance: HYDROXYZINE HYDROCHLORIDE
  20. INSULIN ASPART [Concomitant]
     Active Substance: INSULIN ASPART
  21. INSULIN GLARGINE [Concomitant]
     Active Substance: INSULIN GLARGINE
  22. INSULIN NOS [Concomitant]
     Active Substance: INSULIN NOS
  23. IPRATROPIUM [Concomitant]
     Active Substance: IPRATROPIUM
  24. KETAMINE [Concomitant]
     Active Substance: KETAMINE
  25. LACTATED RINGERS SOLUTION [Concomitant]
     Active Substance: CALCIUM CHLORIDE\POTASSIUM CHLORIDE\SODIUM CHLORIDE\SODIUM LACTATE
  26. LIDOCAINE [Concomitant]
     Active Substance: LIDOCAINE
     Route: 061
  27. PRILOCAINE [Concomitant]
     Active Substance: PRILOCAINE
     Route: 061
  28. LORATADINE [Concomitant]
     Active Substance: LORATADINE
  29. MAGNESIUM SULFATE [Concomitant]
     Active Substance: MAGNESIUM SULFATE
  30. MELATONIN [Concomitant]
     Active Substance: MELATONIN
  31. MEROPENEM [Concomitant]
     Active Substance: MEROPENEM
  32. METHYLPREDNISOLONE [Concomitant]
     Active Substance: METHYLPREDNISOLONE
  33. METRONIDAZOLE [Concomitant]
     Active Substance: METRONIDAZOLE
  34. MIDAZOLAM [Concomitant]
     Active Substance: MIDAZOLAM
  35. MONTELUKAST [Concomitant]
     Active Substance: MONTELUKAST
  36. PANTOPRAZOLE [Concomitant]
     Active Substance: PANTOPRAZOLE
  37. NOREPINEPHRINE [Concomitant]
     Active Substance: NOREPINEPHRINE
  38. POLYETHYLENE GLYCOL [Concomitant]
     Active Substance: POLYETHYLENE GLYCOL
  39. PROPOFOL [Concomitant]
     Active Substance: PROPOFOL
  40. PROPRANOLOL [Concomitant]
     Active Substance: PROPRANOLOL HYDROCHLORIDE
  41. QUETIAPINE [Concomitant]
     Active Substance: QUETIAPINE
  42. RIVAROXABAN [Concomitant]
     Active Substance: RIVAROXABAN
  43. SENNA [Concomitant]
     Active Substance: SENNOSIDES
  44. SODIUM BICARBONATE [Concomitant]
     Active Substance: SODIUM BICARBONATE
  45. SODIUM CHLORIDE [Concomitant]
     Active Substance: SODIUM CHLORIDE
  46. SODIUM ZIRCONIUM CYCLOSILICATE [Concomitant]
     Active Substance: SODIUM ZIRCONIUM CYCLOSILICATE
  47. TAMSULOSIN [Concomitant]
     Active Substance: TAMSULOSIN
  48. TEMAZEPAM [Concomitant]
     Active Substance: TEMAZEPAM
  49. TIOTROPIUM [Concomitant]
     Active Substance: TIOTROPIUM
  50. VANCOMYCIN [Concomitant]
     Active Substance: VANCOMYCIN
  51. VASOPRESSIN [Concomitant]
     Active Substance: VASOPRESSIN

REACTIONS (9)
  - Methaemoglobinaemia [Unknown]
  - Tachypnoea [Unknown]
  - Septic shock [Unknown]
  - Acute kidney injury [Unknown]
  - Ileus [Unknown]
  - Hypernatraemia [Unknown]
  - Chronic obstructive pulmonary disease [Unknown]
  - Bradycardia [Unknown]
  - Cardiac arrest [Unknown]
